FAERS Safety Report 4627949-9 (Version None)
Quarter: 2005Q2

REPORT INFORMATION
  Report Type: 
  Country: None (occurrence: None)
  Receive Date: 20050404
  Receipt Date: 20050404
  Transmission Date: 20051028
  Serious: No
  Sender: FDA-Public Use
  Company Number: None

PATIENT
  Sex: Male
  Weight: 102.9665 kg

DRUGS (1)
  1. GEODON [Suspect]
     Indication: ACUTE PSYCHOSIS
     Dosage: 20MG   BID  ORAL
     Route: 048
     Dates: start: 20050221, end: 20050228

REACTIONS (1)
  - GENERALISED OEDEMA [None]
